FAERS Safety Report 5630777-9 (Version None)
Quarter: 2008Q1

REPORT INFORMATION
  Report Type: 
  Country: None (occurrence: None)
  Receive Date: 20080213
  Receipt Date: 20080204
  Transmission Date: 20080703
  Serious: Yes (Death)
  Sender: FDA-Public Use
  Company Number: 2008-01057

PATIENT
  Age: 42 Year
  Sex: Female

DRUGS (3)
  1. FIORICET [Suspect]
  2. DIIPHENHYDRAMINE (WATSON LABORATORIES)(DIPHENHYDRAMINE HYDROCHLORIDE) [Suspect]
  3. CHLORDIAZEPOXIDE/AMITRIPTYLINE HCL (UNKNOWN STRENGTH) (WATSON)(AMITRIP [Suspect]

REACTIONS (1)
  - DEATH [None]
